FAERS Safety Report 25373059 (Version 2)
Quarter: 2025Q2

REPORT INFORMATION
  Report Type: Spontaneous
  Country: DE (occurrence: DE)
  Receive Date: 20250529
  Receipt Date: 20250623
  Transmission Date: 20250716
  Serious: Yes (Life-Threatening, Hospitalization)
  Sender: MYLAN
  Company Number: DE-MYLANLABS-2025M1044681

PATIENT
  Age: 5 Year
  Sex: Female

DRUGS (1)
  1. FENTANYL [Suspect]
     Active Substance: FENTANYL
     Indication: Product used for unknown indication

REACTIONS (6)
  - Accidental exposure to product by child [Unknown]
  - Toxicity to various agents [Unknown]
  - Respiratory failure [Unknown]
  - Miosis [Unknown]
  - Coma [Recovered/Resolved]
  - Hypokalaemia [Recovered/Resolved]
